FAERS Safety Report 25321662 (Version 2)
Quarter: 2025Q2

REPORT INFORMATION
  Report Type: Spontaneous
  Country: US (occurrence: US)
  Receive Date: 20250516
  Receipt Date: 20250526
  Transmission Date: 20250716
  Serious: No
  Sender: VIIV
  Company Number: US-VIIV HEALTHCARE-US2025057552

PATIENT

DRUGS (5)
  1. CABENUVA [Interacting]
     Active Substance: CABOTEGRAVIR\RILPIVIRINE
     Indication: Product used for unknown indication
  2. CABENUVA [Interacting]
     Active Substance: CABOTEGRAVIR\RILPIVIRINE
  3. CABENUVA [Interacting]
     Active Substance: CABOTEGRAVIR\RILPIVIRINE
  4. LENACAPAVIR [Interacting]
     Active Substance: LENACAPAVIR
     Indication: Product used for unknown indication
  5. DESCOVY [Interacting]
     Active Substance: EMTRICITABINE\TENOFOVIR ALAFENAMIDE FUMARATE
     Indication: Product used for unknown indication

REACTIONS (3)
  - Product use in unapproved therapeutic environment [Unknown]
  - Off label use [Unknown]
  - Labelled drug-drug interaction issue [Unknown]
